FAERS Safety Report 23774408 (Version 1)
Quarter: 2024Q2

REPORT INFORMATION
  Report Type: Spontaneous
  Country: GB (occurrence: GB)
  Receive Date: 20240423
  Receipt Date: 20240423
  Transmission Date: 20240716
  Serious: Yes (Other)
  Sender: FDA-Public Use
  Company Number: None

PATIENT
  Sex: Female
  Weight: 36 kg

DRUGS (2)
  1. CLARITHROMYCIN [Suspect]
     Active Substance: CLARITHROMYCIN
     Indication: Pertussis
     Dosage: 250 MG/5ML TWICE A DAY FOR 7 DAYS
     Route: 065
     Dates: start: 20240408
  2. CALPOL [Concomitant]
     Active Substance: ACETAMINOPHEN
     Indication: Pertussis
     Dosage: DURATION: 7 DAYS
     Dates: start: 20240405, end: 20240412

REACTIONS (7)
  - Rash erythematous [Not Recovered/Not Resolved]
  - Rash pruritic [Not Recovered/Not Resolved]
  - Rash [Not Recovered/Not Resolved]
  - Rash [Recovering/Resolving]
  - Rash papular [Not Recovered/Not Resolved]
  - Viral rash [Not Recovered/Not Resolved]
  - Rash [Not Recovered/Not Resolved]

NARRATIVE: CASE EVENT DATE: 20240409
